FAERS Safety Report 6569722-0 (Version None)
Quarter: 2010Q1

REPORT INFORMATION
  Report Type: 
  Country: None (occurrence: None)
  Receive Date: 20100204
  Receipt Date: 20100201
  Transmission Date: 20100710
  Serious: Yes (Death, Other)
  Sender: FDA-Public Use
  Company Number: PHEH2009US17800

PATIENT
  Sex: Male
  Weight: 77.823 kg

DRUGS (1)
  1. EXJADE [Suspect]
     Dosage: 1500 MG PER DAY
     Route: 048

REACTIONS (5)
  - CARDIAC ARREST [None]
  - DEATH [None]
  - FOREIGN BODY [None]
  - HAEMORRHAGE [None]
  - PLATELET COUNT DECREASED [None]
